FAERS Safety Report 13470878 (Version 2)
Quarter: 2017Q2

REPORT INFORMATION
  Report Type: Report from Study
  Country: US (occurrence: US)
  Receive Date: 20170424
  Receipt Date: 20170428
  Transmission Date: 20170830
  Serious: Yes (Hospitalization, Other)
  Sender: FDA-Public Use
  Company Number: US-ROCHE-1923564

PATIENT
  Age: 1 Year
  Sex: Female
  Weight: 14.07 kg

DRUGS (3)
  1. NUTROPIN AQ [Suspect]
     Active Substance: SOMATROPIN
     Indication: PRODUCT USED FOR UNKNOWN INDICATION
     Dosage: NUSPIN PEN.
     Route: 058
     Dates: end: 20151209
  2. NUTROPIN AQ [Suspect]
     Active Substance: SOMATROPIN
     Dosage: DOSE WAS INCREASED.
     Route: 058
  3. NUTROPIN AQ [Suspect]
     Active Substance: SOMATROPIN
     Dosage: NUSPIN PEN.
     Route: 058

REACTIONS (2)
  - Insulin-like growth factor increased [Recovered/Resolved]
  - Insulin-like growth factor decreased [Unknown]

NARRATIVE: CASE EVENT DATE: 20160119
